FAERS Safety Report 4894490-8 (Version None)
Quarter: 2006Q1

REPORT INFORMATION
  Report Type: 
  Country: None (occurrence: None)
  Receive Date: 20060124
  Receipt Date: 20060110
  Transmission Date: 20060701
  Serious: Yes (Hospitalization)
  Sender: FDA-Public Use
  Company Number: 200610267BWH

PATIENT
  Age: 77 Year
  Sex: Male

DRUGS (5)
  1. SORAFENIB [Suspect]
     Indication: METASTATIC RENAL CELL CARCINOMA
     Dosage: 400 MG, BID, ORAL
     Route: 048
     Dates: end: 20051223
  2. DILTIAZEM HCL [Concomitant]
  3. LESCOL [Concomitant]
  4. AMBIEN [Concomitant]
  5. ALLOPURINOL [Concomitant]

REACTIONS (12)
  - ASPARTATE AMINOTRANSFERASE INCREASED [None]
  - BLOOD ALKALINE PHOSPHATASE INCREASED [None]
  - CHEST PAIN [None]
  - CHEST X-RAY ABNORMAL [None]
  - CREATINE PHOSPHOKINASE DECREASED [None]
  - DYSPNOEA [None]
  - HYPOTENSION [None]
  - MUSCLE TIGHTNESS [None]
  - MYOCARDIAL INFARCTION [None]
  - PULMONARY EMBOLISM [None]
  - PULMONARY MASS [None]
  - RASH [None]
